FAERS Safety Report 8582666-8 (Version None)
Quarter: 2012Q3

REPORT INFORMATION
  Report Type: 
  Country: None (occurrence: None)
  Receive Date: 20120809
  Receipt Date: 20120807
  Transmission Date: 20120928
  Serious: No
  Sender: FDA-Public Use
  Company Number: US-PFIZER INC-2012192510

PATIENT
  Sex: Female

DRUGS (2)
  1. FLECTOR [Suspect]
     Dosage: UNK, 1X/DAY
     Dates: start: 20120101, end: 20120803
  2. FLECTOR [Suspect]
     Indication: NERVE COMPRESSION
     Dosage: UNK, 1X/DAY
     Dates: start: 20120705, end: 20120101

REACTIONS (6)
  - ERYTHEMA [None]
  - DERMATITIS CONTACT [None]
  - SKIN BURNING SENSATION [None]
  - SKIN IRRITATION [None]
  - PRURITUS [None]
  - SKIN EXFOLIATION [None]
